FAERS Safety Report 19123966 (Version 2)
Quarter: 2023Q2

REPORT INFORMATION
  Report Type: Spontaneous
  Country: US (occurrence: US)
  Receive Date: 20210412
  Receipt Date: 20230505
  Transmission Date: 20230722
  Serious: No
  Sender: FDA-Public Use
  Company Number: US-RECORDATI RARE DISEASE INC.-2020004136

PATIENT

DRUGS (8)
  1. CYSTADANE [Suspect]
     Active Substance: BETAINE
     Indication: Homocystinuria
     Dosage: 3 GRAM, BID
     Route: 048
     Dates: start: 200909
  2. VITAMIN B6 [Concomitant]
     Active Substance: PYRIDOXINE HYDROCHLORIDE
     Indication: Product used for unknown indication
     Dosage: 2 DOSAGE FORM (TABLET), TID
     Route: 048
  3. CYANOCOBALAMIN [Concomitant]
     Active Substance: CYANOCOBALAMIN
     Indication: Product used for unknown indication
     Dosage: 1 DOSAGE FORM (TABELT), QD
  4. ASPIRIN [Concomitant]
     Active Substance: ASPIRIN
     Indication: Product used for unknown indication
     Dosage: 1 DOSAGE FORM (TABLET), QD
     Route: 048
  5. FOLIC ACID [Concomitant]
     Active Substance: FOLIC ACID
     Indication: Product used for unknown indication
     Dosage: 1 DOSAGE FORM (TABLET), QD
     Route: 048
  6. ZINC SULFATE [Concomitant]
     Active Substance: ZINC SULFATE
     Indication: Product used for unknown indication
     Dosage: UNK
  7. MINERALS\VITAMINS [Concomitant]
     Active Substance: MINERALS\VITAMINS
     Indication: Product used for unknown indication
     Dosage: UNK
  8. ZINC 220 [Concomitant]
     Indication: Product used for unknown indication
     Dosage: 1 DOSAGE FORM (CAPSULE), TID
     Route: 048

REACTIONS (5)
  - Pre-eclampsia [Unknown]
  - Nausea [Unknown]
  - Vomiting [Unknown]
  - Exposure during pregnancy [Recovered/Resolved]
  - Maternal exposure during breast feeding [Recovered/Resolved]

NARRATIVE: CASE EVENT DATE: 20200101
